FAERS Safety Report 21121488 (Version 1)
Quarter: 2022Q3

REPORT INFORMATION
  Report Type: Spontaneous
  Country: GB (occurrence: GB)
  Receive Date: 20220722
  Receipt Date: 20220722
  Transmission Date: 20221027
  Serious: Yes (Hospitalization)
  Sender: FDA-Public Use
  Company Number: None

PATIENT
  Age: 80 Year
  Sex: Female

DRUGS (13)
  1. PREDNISOLONE [Suspect]
     Active Substance: PREDNISOLONE
     Indication: Product used for unknown indication
     Dosage: 30 MILLIGRAM DAILY; UNIT DOSE : 5 MG , FREQUENCY : 6 , FREQUENCY TIME : 1 DAYS
     Route: 065
     Dates: start: 20211210
  2. AMOXICILLIN [Concomitant]
     Active Substance: AMOXICILLIN
     Indication: Chronic obstructive pulmonary disease
     Dosage: 1500 MILLIGRAM DAILY; UNIT DOSE : 500  MG , FREQUENCY : 3 , FREQUENCY TIME : 1 DAYS
  3. CARBOCYSTEINE [Concomitant]
     Active Substance: CARBOCYSTEINE
     Indication: Product used for unknown indication
     Dosage: 1500 MILLIGRAM DAILY; UNIT DOSE : 750 MG , FREQUENCY : 2 , FREQUENCY TIME : 1 DAYS
  4. FUROSEMIDE [Concomitant]
     Active Substance: FUROSEMIDE
     Indication: Product used for unknown indication
     Dosage: 40 MILLIGRAM DAILY; EACH MORNING, UNIT DOSE : 40  MG , FREQUENCY : 1 , FREQUENCY TIME : 1 DAYS
  5. LORAZEPAM [Concomitant]
     Active Substance: LORAZEPAM
     Indication: Dyspnoea
     Dosage: UNIT DOSE : 0.5 MG, FREQUENCY TIME : AS REQUIRED
     Dates: start: 20220125
  6. METFORMIN [Concomitant]
     Active Substance: METFORMIN HYDROCHLORIDE
     Indication: Type 2 diabetes mellitus
     Dosage: 1000 MILLIGRAM DAILY; BREAKFAST AND EVENING MEAL, RAISED LACTATE - OFF METFORMIN AS BMS WELL CONTROL
  7. MORPHINE [Concomitant]
     Active Substance: MORPHINE
     Indication: Dyspnoea
     Dosage: 10MG/5ML, FREQUENCY TIME : AS REQUIRED, UNIT DOSE : 1.25 ML
  8. ALBUTEROL [Concomitant]
     Active Substance: ALBUTEROL
     Indication: Product used for unknown indication
     Dosage: 4 DOSAGE FORMS DAILY; 5MG/2.5ML NEBULISER LIQUID UNIT DOSE VIALS, UNIT DOSE : 1 DOSAGE FORMS , FREQU
     Route: 055
     Dates: start: 20211208
  9. TEMAZEPAM [Concomitant]
     Active Substance: TEMAZEPAM
     Indication: Product used for unknown indication
     Dosage: 10 MILLIGRAM DAILY; AT NIGHT, UNIT DOSE : 10 MG , FREQUENCY : 1 , FREQUENCY TIME : 1 DAYS
  10. BECLOMETHASONE DIPROPIONATE\FORMOTEROL FUMARATE\GLYCOPYRROLATE [Concomitant]
     Active Substance: BECLOMETHASONE DIPROPIONATE\FORMOTEROL FUMARATE\GLYCOPYRROLATE
     Indication: Product used for unknown indication
     Dosage: 4 DOSAGE FORMS DAILY; 1 X 120 DOS, UNIT DOSE : 2  DOSAGE FORMS , FREQUENCY : 2 , FREQUENCY TIME : 1
     Route: 055
  11. ALBUTEROL [Concomitant]
     Active Substance: ALBUTEROL
     Indication: Product used for unknown indication
     Dosage: ONE OR TWO PUFFS UP TO FOUR TIMES A DAY (TO BE USED WITH YOUR SPACER) 2 X 200 DOSE, UNIT DOSE : 100
     Route: 055
     Dates: start: 20220214
  12. CALCIUM\CHOLECALCIFEROL [Concomitant]
     Active Substance: CALCIUM\CHOLECALCIFEROL
     Indication: Product used for unknown indication
     Dosage: 1 DOSAGE FORMS DAILY; UNIT DOSE : 1 DOSAGE FORMS , FREQUENCY : 1 , FREQUENCY TIME : 1 DAYS
  13. ATORVASTATIN [Concomitant]
     Active Substance: ATORVASTATIN
     Indication: Product used for unknown indication
     Dosage: 20 MILLIGRAM DAILY; AT NIGHT, UNIT DOSE : 20  MG , FREQUENCY : 1 , FREQUENCY TIME : 1 DAYS

REACTIONS (1)
  - Oedema peripheral [Unknown]
